FAERS Safety Report 8064011-X (Version None)
Quarter: 2012Q1

REPORT INFORMATION
  Report Type: 
  Country: None (occurrence: None)
  Receive Date: 20120123
  Receipt Date: 20120119
  Transmission Date: 20120608
  Serious: Yes (Hospitalization, Other)
  Sender: FDA-Public Use
  Company Number: PHHO2012IT001431

PATIENT
  Sex: Female
  Weight: 57 kg

DRUGS (3)
  1. ELOPRAM [Concomitant]
     Indication: INSOMNIA
     Dosage: 11 GTT, UNK
     Dates: start: 20091221
  2. FTY [Suspect]
     Indication: MULTIPLE SCLEROSIS
     Dosage: 0.5 MG, QD
     Route: 048
     Dates: start: 20110325
  3. LYRICA [Concomitant]
     Indication: ANXIETY
     Dosage: 50 MG, UNK
     Dates: start: 20110906

REACTIONS (1)
  - BASAL CELL CARCINOMA [None]
